FAERS Safety Report 7844704-7 (Version None)
Quarter: 2011Q4

REPORT INFORMATION
  Report Type: 
  Country: None (occurrence: None)
  Receive Date: 20111017
  Receipt Date: 20111006
  Transmission Date: 20120403
  Serious: Yes (Hospitalization)
  Sender: FDA-Public Use
  Company Number: 2011SP045686

PATIENT
  Age: 69 Year
  Sex: Male

DRUGS (4)
  1. REBETOL [Suspect]
     Indication: HEPATITIS C
     Dosage: 400 MG;BID;PO
     Route: 048
     Dates: start: 20101129, end: 20110815
  2. LOXONIN (LOXOPROFEN SODIUM HYDRATE) [Concomitant]
  3. FAMOTIDINE [Concomitant]
  4. PEG-INTRON [Suspect]
     Indication: HEPATITIS C
     Dosage: 60 MCG;QD;SC
     Route: 058
     Dates: start: 20101129, end: 20110809

REACTIONS (3)
  - HEAD INJURY [None]
  - SUBDURAL HAEMATOMA [None]
  - FALL [None]
